FAERS Safety Report 4297703-9 (Version None)
Quarter: 2004Q1

REPORT INFORMATION
  Report Type: 
  Country: None (occurrence: None)
  Receive Date: 20040126
  Receipt Date: 20030917
  Transmission Date: 20041129
  Serious: No
  Sender: FDA-Public Use
  Company Number: USA030947478

PATIENT
  Age: 29 Year
  Sex: Male

DRUGS (1)
  1. STRATTERA [Suspect]
     Indication: ATTENTION DEFICIT/HYPERACTIVITY DISORDER
     Dosage: 40 MG
     Dates: start: 20030708

REACTIONS (5)
  - CHILLS [None]
  - DISORIENTATION [None]
  - MEMORY IMPAIRMENT [None]
  - PARAESTHESIA [None]
  - VISION BLURRED [None]
